FAERS Safety Report 8462537-8 (Version None)
Quarter: 2012Q2

REPORT INFORMATION
  Report Type: 
  Country: None (occurrence: None)
  Receive Date: 20120625
  Receipt Date: 20120613
  Transmission Date: 20120825
  Serious: Yes (Other)
  Sender: FDA-Public Use
  Company Number: JP-VERTEX PHARMACEUTICALS INC.-AE-2012-008932

PATIENT
  Age: 68 Year
  Sex: Female

DRUGS (7)
  1. MUCOSTA [Concomitant]
     Route: 048
     Dates: start: 20120305
  2. PEGINTERFERON ALFA-2B [Concomitant]
     Indication: HEPATITIS C
     Route: 058
     Dates: start: 20120305, end: 20120417
  3. ALLOPURINOL [Concomitant]
     Route: 048
     Dates: start: 20120307, end: 20120402
  4. PEGINTERFERON ALFA-2B [Concomitant]
     Route: 058
     Dates: start: 20120426
  5. RIBAVIRIN [Concomitant]
     Indication: HEPATITIS C
     Route: 048
     Dates: start: 20120305
  6. TELAVIC (TELAPREVIR) [Suspect]
     Indication: HEPATITIS C
     Route: 048
     Dates: start: 20120305, end: 20120423
  7. EVAMYL [Concomitant]
     Route: 048
     Dates: start: 20120305

REACTIONS (1)
  - RASH [None]
